FAERS Safety Report 4863852-7 (Version None)
Quarter: 2005Q4

REPORT INFORMATION
  Report Type: 
  Country: None (occurrence: None)
  Receive Date: 20051222
  Receipt Date: 20051018
  Transmission Date: 20060501
  Serious: No
  Sender: FDA-Public Use
  Company Number: US-GLAXOSMITHKLINE-A0578624A

PATIENT
  Age: 55 Year
  Sex: Male

DRUGS (12)
  1. FLONASE [Suspect]
     Route: 045
  2. BACTRIM DS [Concomitant]
  3. ALLOPURINOL [Concomitant]
  4. ALBUTEROL [Concomitant]
  5. AZMACORT [Concomitant]
  6. ALLEGRA [Concomitant]
  7. BENICAR [Concomitant]
  8. PRILOSEC [Concomitant]
  9. ASPIRIN [Concomitant]
     Dosage: 81MG UNKNOWN
     Route: 048
  10. GAVISCON [Concomitant]
  11. NASAL IRRIGATION [Concomitant]
  12. HYDROCHLOROTHIAZIDE [Concomitant]

REACTIONS (2)
  - PHARMACEUTICAL PRODUCT COMPLAINT [None]
  - SINUSITIS [None]
